FAERS Safety Report 14153023 (Version 3)
Quarter: 2017Q4

REPORT INFORMATION
  Report Type: Spontaneous
  Country: BR (occurrence: BR)
  Receive Date: 20171102
  Receipt Date: 20171122
  Transmission Date: 20180321
  Serious: Yes (Other)
  Sender: FDA-Public Use
  Company Number: BR-ALEXION PHARMACEUTICALS INC-A201711991

PATIENT
  Age: 32 Year
  Sex: Male
  Weight: 104 kg

DRUGS (6)
  1. SOLIRIS [Suspect]
     Active Substance: ECULIZUMAB
     Dosage: 900 MG, Q2W
     Route: 042
     Dates: start: 20140107
  2. PREDNISONE. [Concomitant]
     Active Substance: PREDNISONE
     Dosage: 40 MG, UNK
     Route: 065
     Dates: start: 20170907, end: 20171017
  3. PREDNISONE. [Concomitant]
     Active Substance: PREDNISONE
     Dosage: 20 MG, UNK
     Route: 065
     Dates: start: 20171017
  4. SOLIRIS [Suspect]
     Active Substance: ECULIZUMAB
     Indication: PAROXYSMAL NOCTURNAL HAEMOGLOBINURIA
     Dosage: 600 MG, QW
     Route: 042
     Dates: start: 20131205, end: 20131226
  5. SOLIRIS [Suspect]
     Active Substance: ECULIZUMAB
     Dosage: 600 MG, QW
     Route: 042
     Dates: start: 20131205, end: 20131229
  6. PREDNISONE. [Concomitant]
     Active Substance: PREDNISONE
     Indication: PRODUCT USED FOR UNKNOWN INDICATION
     Dosage: 60 MG, UNK
     Route: 065
     Dates: start: 20170905, end: 20170906

REACTIONS (2)
  - Haemoglobin decreased [Unknown]
  - Inappropriate schedule of drug administration [Recovered/Resolved]

NARRATIVE: CASE EVENT DATE: 20170822
